FAERS Safety Report 13012960 (Version 1)
Quarter: 2016Q4

REPORT INFORMATION
  Report Type: Spontaneous
  Country: US (occurrence: US)
  Receive Date: 20161209
  Receipt Date: 20161209
  Transmission Date: 20170207
  Serious: No
  Sender: FDA-Public Use
  Company Number: US-PFIZER INC-2016562005

PATIENT
  Age: 10 Year
  Sex: Female
  Weight: 41 kg

DRUGS (9)
  1. PREDNISONE. [Concomitant]
     Active Substance: PREDNISONE
     Dosage: 4 ML, 2X/DAY
     Route: 048
  2. MOTRIN [Concomitant]
     Active Substance: IBUPROFEN
     Indication: PAIN
     Dosage: 10 ML, AS NEEDED (TAKE 10 ML BY MOUTH EVERY 6 HOURS AS NEEDED)
     Route: 048
  3. GENOTROPIN [Suspect]
     Active Substance: SOMATROPIN
     Dosage: 1.5 MG, DAILY
     Route: 058
  4. ADVIL [Concomitant]
     Active Substance: IBUPROFEN
     Indication: PAIN
     Dosage: 10 ML, AS NEEDED (TAKE 10 ML BY MOUTH EVERY 6 HOURS AS NEEDED)
     Route: 048
  5. LEVOTHROID [Concomitant]
     Active Substance: LEVOTHYROXINE SODIUM
     Dosage: 25 UG, 1X/DAY (TAKE IN THE MORNING ON AN EMPTY STOMACH)
     Route: 048
  6. FLEXERIL [Concomitant]
     Active Substance: CYCLOBENZAPRINE HYDROCHLORIDE
     Indication: MUSCLE SPASMS
     Dosage: 0.5 MG, AS NEEDED (TAKE 0.5 TABS BY MOUTH 3 TIMES DAILY AS NEEDED)
     Route: 048
  7. GENOTROPIN [Suspect]
     Active Substance: SOMATROPIN
     Indication: GROWTH HORMONE DEFICIENCY
     Dosage: 1.8 MG, DAILY
     Dates: start: 20141204
  8. GENOTROPIN [Suspect]
     Active Substance: SOMATROPIN
     Dosage: 1.8 MG, DAILY
     Route: 058
     Dates: start: 20151118
  9. SYNTHROID [Concomitant]
     Active Substance: LEVOTHYROXINE SODIUM
     Dosage: 25 UG, 1X/DAY (TAKE IN THE MORNING ON AN EMPTY STOMACH)
     Route: 048

REACTIONS (2)
  - Body mass index increased [Unknown]
  - Weight increased [Unknown]
